FAERS Safety Report 21158517 (Version 1)
Quarter: 2022Q3

REPORT INFORMATION
  Report Type: Other
  Country: IS (occurrence: IS)
  Receive Date: 20220801
  Receipt Date: 20220801
  Transmission Date: 20221026
  Serious: Yes (Other)
  Sender: FDA-Public Use
  Company Number: IS-CELLTRION INC.-2022IS011899

PATIENT

DRUGS (29)
  1. RITUXIMAB [Suspect]
     Active Substance: RITUXIMAB
     Indication: Burkitt^s lymphoma
     Dosage: 4TH SYSTEMIC TREATMENT
     Route: 065
     Dates: start: 20211022, end: 20211022
  2. RITUXIMAB [Suspect]
     Active Substance: RITUXIMAB
     Dosage: 1ST SYSTEMIC TREATMENT R-CODOX-M/IVAC
     Route: 065
     Dates: start: 20210601, end: 20210701
  3. CARBOPLATIN [Suspect]
     Active Substance: CARBOPLATIN
     Indication: Burkitt^s lymphoma
     Dosage: 2ND SYSTEMIC TREATMENT OBINUTUZUMAB-ICE
     Route: 065
     Dates: start: 20210701, end: 20210801
  4. CYCLOPHOSPHAMIDE [Suspect]
     Active Substance: CYCLOPHOSPHAMIDE
     Indication: Burkitt^s lymphoma
     Dosage: 4TH SYSTEMIC TREATMENT
     Route: 065
     Dates: start: 20211022, end: 20211022
  5. CYCLOPHOSPHAMIDE [Suspect]
     Active Substance: CYCLOPHOSPHAMIDE
     Dosage: 1ST SYSTEMIC TREATMENT R-CODOX-M/IVAC
     Route: 065
     Dates: start: 20210601, end: 20210701
  6. CYTARABINE [Suspect]
     Active Substance: CYTARABINE
     Indication: Burkitt^s lymphoma
     Dosage: 1ST SYSTEMIC TREATMENT R-CODOX-M/IVAC
     Route: 065
     Dates: start: 20210601, end: 20210701
  7. DOXORUBICIN [Suspect]
     Active Substance: DOXORUBICIN
     Indication: Burkitt^s lymphoma
     Dosage: 4TH SYSTEMIC TREATMENT
     Route: 065
     Dates: start: 20211022, end: 20211022
  8. DOXORUBICIN [Suspect]
     Active Substance: DOXORUBICIN
     Dosage: 1ST SYSTEMIC TREATMENT R-CODOX-M/IVAC
     Route: 065
     Dates: start: 20210601, end: 20210701
  9. ETOPOSIDE [Suspect]
     Active Substance: ETOPOSIDE
     Indication: Burkitt^s lymphoma
     Dosage: 1ST SYSTEMIC TREATMENT R-CODOX-M/IVAC
     Route: 065
     Dates: start: 20210601, end: 20210701
  10. ETOPOSIDE [Suspect]
     Active Substance: ETOPOSIDE
     Dosage: 2ND SYSTEMIC TREATMENT OBINUTUZUMAB-ICE
     Route: 065
     Dates: start: 20210701, end: 20210801
  11. GEMCITABINE [Suspect]
     Active Substance: GEMCITABINE
     Indication: Burkitt^s lymphoma
     Dosage: GEMCITABINE-BASED REGIMENDAY 1, 8, 15
     Route: 065
     Dates: start: 20210901, end: 20211001
  12. IFOSFAMIDE [Suspect]
     Active Substance: IFOSFAMIDE
     Indication: Burkitt^s lymphoma
     Dosage: 1ST SYSTEMIC TREATMENT R-CODOX-M/IVAC
     Route: 065
     Dates: start: 20210601, end: 20210701
  13. IFOSFAMIDE [Suspect]
     Active Substance: IFOSFAMIDE
     Dosage: 2ND SYSTEMIC TREATMENT OBINUTUZUMAB-ICE
     Route: 065
     Dates: start: 20210701, end: 20210801
  14. MELPHALAN [Suspect]
     Active Substance: MELPHALAN
     Indication: Burkitt^s lymphoma
     Dosage: GEMCITABINE-BASED REGIMEND1
     Route: 065
     Dates: start: 20210901, end: 20211001
  15. METHOTREXATE [Suspect]
     Active Substance: METHOTREXATE
     Indication: Burkitt^s lymphoma
     Dosage: 1ST SYSTEMIC TREATMENT R-CODOX-M/IVAC
     Route: 065
     Dates: start: 20210601, end: 20210701
  16. OBINUTUZUMAB [Suspect]
     Active Substance: OBINUTUZUMAB
     Indication: Burkitt^s lymphoma
     Dosage: 2ND SYSTEMIC TREATMENT OBINUTUZUMAB-ICE
     Dates: start: 20210701, end: 20210801
  17. PREDNISONE [Suspect]
     Active Substance: PREDNISONE
     Indication: Burkitt^s lymphoma
     Dosage: 4TH SYSTEMIC TREATMENT
     Route: 065
     Dates: start: 20211022, end: 20211022
  18. VINCRISTINE [Suspect]
     Active Substance: VINCRISTINE
     Indication: Burkitt^s lymphoma
     Dosage: 4TH SYSTEMIC TREATMENT
     Route: 065
     Dates: start: 20211022, end: 20211022
  19. VINCRISTINE [Suspect]
     Active Substance: VINCRISTINE
     Dosage: 1ST SYSTEMIC TREATMENT R-CODOX-M/IVAC
     Route: 065
     Dates: start: 20210601, end: 20210701
  20. ACYCLOVIR [Concomitant]
     Active Substance: ACYCLOVIR
  21. ALLOPURINOL [Concomitant]
     Active Substance: ALLOPURINOL
  22. CITALOPRAM [Concomitant]
     Active Substance: CITALOPRAM HYDROBROMIDE
  23. MORPHINE SULFATE [Concomitant]
     Active Substance: MORPHINE SULFATE
     Dosage: 20 MG X2
  24. FLUCONAZOLE [Concomitant]
     Active Substance: FLUCONAZOLE
  25. MEROPENEM [Concomitant]
     Active Substance: MEROPENEM
  26. METRONIDAZOLE [Concomitant]
     Active Substance: METRONIDAZOLE
  27. OXAZEPAM [Concomitant]
     Active Substance: OXAZEPAM
  28. ACETAMINOPHEN [Concomitant]
     Active Substance: ACETAMINOPHEN
     Dosage: 1000 MG X4
  29. VANCOMYCIN [Concomitant]
     Active Substance: VANCOMYCIN

REACTIONS (4)
  - Disease progression [Unknown]
  - Small intestinal perforation [Unknown]
  - Blood lactate dehydrogenase increased [Unknown]
  - Off label use [Unknown]
